FAERS Safety Report 17623889 (Version 2)
Quarter: 2020Q2

REPORT INFORMATION
  Report Type: Report from Study
  Country: US (occurrence: US)
  Receive Date: 20200403
  Receipt Date: 20200624
  Transmission Date: 20200713
  Serious: Yes (Other)
  Sender: FDA-Public Use
  Company Number: US-ACTELION-A-US2020-203566

PATIENT
  Age: 82 Year
  Sex: Male
  Weight: 103.86 kg

DRUGS (6)
  1. XARELTO [Concomitant]
     Active Substance: RIVAROXABAN
  2. AMLODIPINE [Concomitant]
     Active Substance: AMLODIPINE BESYLATE
  3. UPTRAVI [Suspect]
     Active Substance: SELEXIPAG
     Indication: PULMONARY HYPERTENSION
     Dosage: 200 MCG, BID
     Route: 048
     Dates: start: 20200317, end: 20200319
  4. SILDENAFIL CITRATE. [Concomitant]
     Active Substance: SILDENAFIL CITRATE
  5. OXYGEN. [Concomitant]
     Active Substance: OXYGEN
  6. UPTRAVI [Suspect]
     Active Substance: SELEXIPAG
     Dosage: 1200 MCG, BID
     Route: 048

REACTIONS (12)
  - Temporomandibular joint syndrome [Unknown]
  - Neck pain [Recovering/Resolving]
  - Nausea [Recovering/Resolving]
  - Pain in jaw [Unknown]
  - Oxygen consumption increased [Unknown]
  - Headache [Unknown]
  - Flatulence [Unknown]
  - Deafness transitory [Unknown]
  - Diarrhoea [Unknown]
  - Unevaluable event [Unknown]
  - Discomfort [Unknown]
  - Frequent bowel movements [Unknown]

NARRATIVE: CASE EVENT DATE: 202003
